FAERS Safety Report 5000289-4 (Version None)
Quarter: 2006Q2

REPORT INFORMATION
  Report Type: 
  Country: None (occurrence: None)
  Receive Date: 20060511
  Receipt Date: 20050414
  Transmission Date: 20061013
  Serious: Yes (Hospitalization, Disabling)
  Sender: FDA-Public Use
  Company Number: US-MERCK-0504USA02562

PATIENT
  Age: 51 Year
  Sex: Female
  Weight: 64 kg

DRUGS (5)
  1. VIOXX [Suspect]
     Indication: ARTHRITIS
     Route: 048
     Dates: start: 20021001, end: 20040901
  2. ZESTRIL [Concomitant]
     Route: 065
  3. HYDROCHLOROTHIAZIDE [Concomitant]
     Indication: SWELLING
     Route: 065
  4. LASIX [Concomitant]
     Indication: SWELLING
     Route: 065
  5. POTASSIUM (UNSPECIFIED) [Concomitant]
     Indication: SWELLING
     Route: 065

REACTIONS (9)
  - CARDIAC DISORDER [None]
  - CARDIAC MURMUR [None]
  - CERVICAL VERTEBRAL FRACTURE [None]
  - GASTROOESOPHAGEAL REFLUX DISEASE [None]
  - HYPERTENSION [None]
  - MENTAL DISORDER [None]
  - RENAL FAILURE [None]
  - ROAD TRAFFIC ACCIDENT [None]
  - SWELLING [None]
